FAERS Safety Report 5736835-2 (Version None)
Quarter: 2008Q2

REPORT INFORMATION
  Report Type: 
  Country: None (occurrence: None)
  Receive Date: 20080508
  Receipt Date: 20080422
  Transmission Date: 20081010
  Serious: Yes (Death)
  Sender: FDA-Public Use
  Company Number: 8032111

PATIENT
  Sex: Male

DRUGS (12)
  1. PREDNISOLONE [Suspect]
     Indication: ACUTE GRAFT VERSUS HOST DISEASE IN SKIN
     Dosage: 50 MG /D
     Dates: start: 20040101, end: 20040101
  2. PREDNISOLONE [Suspect]
     Indication: ACUTE GRAFT VERSUS HOST DISEASE IN SKIN
     Dosage: 80 MG/D
     Dates: start: 20040101, end: 20040101
  3. PREDNISOLONE [Suspect]
     Indication: ACUTE GRAFT VERSUS HOST DISEASE IN SKIN
     Dosage: 30 MG /D
     Dates: start: 20040101, end: 20040101
  4. PREDNISOLONE [Suspect]
     Indication: ACUTE GRAFT VERSUS HOST DISEASE IN SKIN
     Dosage: 80 MG /D
     Dates: start: 20040101, end: 20040101
  5. PREDNISOLONE [Suspect]
     Indication: ACUTE GRAFT VERSUS HOST DISEASE IN SKIN
     Dosage: 20 MG /D
     Dates: start: 20040101, end: 20040101
  6. FLUDARABINE PHOSPHATE [Concomitant]
  7. CYCLOPHOSPHAMIDE [Concomitant]
  8. ALEMTUZUMAB [Concomitant]
  9. BUSULFAN [Concomitant]
  10. CYCLOSPORINE [Concomitant]
  11. TACROLIMUS [Concomitant]
  12. PREDNISONE TAB [Concomitant]

REACTIONS (14)
  - ACUTE GRAFT VERSUS HOST DISEASE IN SKIN [None]
  - BLINDNESS [None]
  - CYTOMEGALOVIRUS INFECTION [None]
  - DEAFNESS [None]
  - DEMYELINATION [None]
  - DISEASE RECURRENCE [None]
  - HEMIANOPIA HOMONYMOUS [None]
  - INCONTINENCE [None]
  - JC VIRUS INFECTION [None]
  - MOOD SWINGS [None]
  - NO THERAPEUTIC RESPONSE [None]
  - SOMNOLENCE [None]
  - TREMOR [None]
  - VERTIGO [None]
